FAERS Safety Report 10909235 (Version 1)
Quarter: 2015Q1

REPORT INFORMATION
  Report Type: Spontaneous
  Country: US (occurrence: US)
  Receive Date: 20150312
  Receipt Date: 20150312
  Transmission Date: 20150721
  Serious: No
  Sender: FDA-Public Use
  Company Number: US-SA-2014SA030225

PATIENT
  Age: 58 Year
  Sex: Female

DRUGS (2)
  1. NASACORT ALLERGY 24HR [Suspect]
     Active Substance: TRIAMCINOLONE ACETONIDE
     Indication: HYPERSENSITIVITY
     Dosage: PRODUCT START: 1.5 WEEKS AGO?PRODUCR STOP: 5 DAYS LATER
     Route: 045
  2. NASACORT ALLERGY 24HR [Suspect]
     Active Substance: TRIAMCINOLONE ACETONIDE
     Indication: NASAL CONGESTION
     Dosage: PRODUCT START: 1.5 WEEKS AGO?PRODUCR STOP: 5 DAYS LATER
     Route: 045

REACTIONS (5)
  - Scratch [Not Recovered/Not Resolved]
  - Rash erythematous [Recovered/Resolved]
  - Urticaria [Not Recovered/Not Resolved]
  - Nasal congestion [Not Recovered/Not Resolved]
  - Pruritus [Not Recovered/Not Resolved]

NARRATIVE: CASE EVENT DATE: 20140304
